FAERS Safety Report 9465009 (Version 1)
Quarter: 2013Q3

REPORT INFORMATION
  Report Type: Spontaneous
  Country: US (occurrence: US)
  Receive Date: 20130819
  Receipt Date: 20130819
  Transmission Date: 20140515
  Serious: Yes (Other)
  Sender: FDA-Public Use
  Company Number: US-BAYER-2013-098404

PATIENT
  Age: 78 Year
  Sex: Male
  Weight: 88 kg

DRUGS (11)
  1. PHILLIPS STOOL SOFTENER BULK DOCUSATE [Suspect]
     Dosage: UNK
  2. CELLCEPT [Concomitant]
  3. NORVASC [Concomitant]
  4. TEMAZEPAM [Concomitant]
  5. LANTUS [Concomitant]
  6. PERCOCET [Concomitant]
  7. TENORMIN [Concomitant]
  8. PRAVACHOL [Concomitant]
  9. PROTONIX [Concomitant]
  10. PRADAXA [Concomitant]
  11. LASIX [Concomitant]

REACTIONS (3)
  - Haemoptysis [Not Recovered/Not Resolved]
  - Foreign body [Recovered/Resolved]
  - Throat irritation [Not Recovered/Not Resolved]
